FAERS Safety Report 8729680 (Version 16)
Quarter: 2014Q3

REPORT INFORMATION
  Report Type: Spontaneous
  Country: US (occurrence: US)
  Receive Date: 20120817
  Receipt Date: 20140804
  Transmission Date: 20150326
  Serious: Yes (Other)
  Sender: FDA-Public Use
  Company Number: PHEH2012US015918

PATIENT
  Sex: Female

DRUGS (12)
  1. ZOMETA [Suspect]
     Active Substance: ZOLEDRONIC ACID
     Indication: BREAST CANCER METASTATIC
  2. AMOXICILLIN. [Concomitant]
     Active Substance: AMOXICILLIN
  3. LEXAPRO [Concomitant]
     Active Substance: ESCITALOPRAM OXALATE
  4. ZOMETA [Suspect]
     Active Substance: ZOLEDRONIC ACID
     Indication: METASTASES TO BONE
     Dosage: 4 MG, UNK
     Route: 042
     Dates: start: 200808, end: 201001
  5. LORTAB [Concomitant]
     Active Substance: ACETAMINOPHEN\HYDROCODONE BITARTRATE
     Indication: BONE PAIN
  6. ABRAXANE [Concomitant]
     Active Substance: PACLITAXEL
     Dosage: 120 MG, UNK
  7. PENICILLIN ^GRUNENTHAL^ [Concomitant]
  8. AUGMENTIN [Concomitant]
     Active Substance: AMOXICILLIN\CLAVULANATE POTASSIUM
  9. AVASTIN [Concomitant]
     Active Substance: BEVACIZUMAB
     Indication: BREAST CANCER
     Dosage: 680 MG, UNK
  10. PREDNISONE. [Concomitant]
     Active Substance: PREDNISONE
     Indication: DYSPNOEA
  11. AMBIEN [Concomitant]
     Active Substance: ZOLPIDEM TARTRATE
  12. ARIMIDEX [Concomitant]
     Active Substance: ANASTROZOLE

REACTIONS (81)
  - Loose tooth [Unknown]
  - Deep vein thrombosis [Unknown]
  - Sarcoidosis [Unknown]
  - Osteopenia [Unknown]
  - Calcinosis [Unknown]
  - Atelectasis [Unknown]
  - Alopecia [Unknown]
  - Neck pain [Unknown]
  - Impaired healing [Unknown]
  - Oral cavity fistula [Unknown]
  - Gingival inflammation [Unknown]
  - Hepatic cyst [Unknown]
  - Oropharyngeal pain [Unknown]
  - Pulmonary mass [Unknown]
  - Urinary tract infection [Unknown]
  - Thrombosis [Unknown]
  - Abdominal pain [Unknown]
  - Retinal degeneration [Unknown]
  - Stomatitis [Unknown]
  - Temporomandibular joint syndrome [Unknown]
  - Peritoneal disorder [Unknown]
  - Head injury [Unknown]
  - Hypoaesthesia [Unknown]
  - Musculoskeletal chest pain [Unknown]
  - Memory impairment [Unknown]
  - Vision blurred [Unknown]
  - Oesophagitis [Unknown]
  - Coagulopathy [Unknown]
  - Back pain [Unknown]
  - Neutropenia [Unknown]
  - Gingivitis [Unknown]
  - Ascites [Unknown]
  - Lacrimation increased [Unknown]
  - Gallbladder disorder [Unknown]
  - Swelling [Unknown]
  - Dyspnoea [Unknown]
  - Immune system disorder [Unknown]
  - Osteonecrosis of jaw [Unknown]
  - Bone loss [Unknown]
  - Ligament disorder [Unknown]
  - Infection [Unknown]
  - Lumbar spinal stenosis [Unknown]
  - Metastases to spine [Unknown]
  - Fall [Unknown]
  - Syncope [Unknown]
  - Intervertebral disc protrusion [Unknown]
  - Confusional state [Unknown]
  - Sinusitis [Unknown]
  - Hydronephrosis [Unknown]
  - Local swelling [Unknown]
  - Spinal deformity [Unknown]
  - Skin irritation [Unknown]
  - Chest pain [Unknown]
  - Pain in jaw [Unknown]
  - Bone disorder [Unknown]
  - Osteolysis [Unknown]
  - Trichiasis [Unknown]
  - Spinal compression fracture [Unknown]
  - Pleural effusion [Unknown]
  - Anaemia [Unknown]
  - Injury [Unknown]
  - Tooth fracture [Unknown]
  - Hypertension [Unknown]
  - Febrile neutropenia [Unknown]
  - Metastases to liver [Unknown]
  - Dysuria [Unknown]
  - Dacryostenosis acquired [Unknown]
  - Rib fracture [Unknown]
  - Intervertebral disc degeneration [Unknown]
  - Spinal osteoarthritis [Unknown]
  - Amnesia [Unknown]
  - Exposed bone in jaw [Unknown]
  - Osteoporosis [Unknown]
  - Neuropathy peripheral [Unknown]
  - Gingival bleeding [Unknown]
  - Osteoarthritis [Unknown]
  - Central nervous system lesion [Unknown]
  - Dehydration [Unknown]
  - Blood alkaline phosphatase increased [Unknown]
  - Fibrosis [Unknown]
  - Headache [Unknown]
